FAERS Safety Report 5138398-1 (Version None)
Quarter: 2006Q4

REPORT INFORMATION
  Report Type: 
  Country: None (occurrence: None)
  Receive Date: 20061030
  Receipt Date: 20060217
  Transmission Date: 20070319
  Serious: No
  Sender: FDA-Public Use
  Company Number: US-GLAXOSMITHKLINE-A0594169A

PATIENT
  Age: 62 Year
  Sex: Female

DRUGS (8)
  1. ADVAIR DISKUS 250/50 [Suspect]
     Indication: ASTHMA
     Dosage: 1PUFF TWICE PER DAY
     Route: 055
  2. FLOVENT [Suspect]
     Indication: ASTHMA
     Dosage: 220MCG TWICE PER DAY
     Route: 055
  3. TOPROL-XL [Concomitant]
  4. LIPITOR [Concomitant]
  5. BECONASE AQ [Concomitant]
  6. MULTI-VITAMIN [Concomitant]
  7. CALCIUM GLUCONATE [Concomitant]
  8. VITAMIN D [Concomitant]

REACTIONS (3)
  - COUGH [None]
  - DRUG INEFFECTIVE [None]
  - PHARMACEUTICAL PRODUCT COMPLAINT [None]
